FAERS Safety Report 18080359 (Version 1)
Quarter: 2020Q3

REPORT INFORMATION
  Report Type: Spontaneous
  Country: US (occurrence: US)
  Receive Date: 20200728
  Receipt Date: 20200728
  Transmission Date: 20201103
  Serious: No
  Sender: FDA-Public Use
  Company Number: None

PATIENT
  Age: 88 Year
  Sex: Female
  Weight: 60.75 kg

DRUGS (3)
  1. ELIQUIS [Concomitant]
     Active Substance: APIXABAN
  2. PROMETHAZINE 25 MG, FROM WALGREENS [Suspect]
     Active Substance: PROMETHAZINE HYDROCHLORIDE
     Indication: VERTIGO
     Dosage: ?          QUANTITY:20 CAPSULE(S);?
     Route: 048
  3. DIGOXYN [Concomitant]

REACTIONS (5)
  - Fatigue [None]
  - Emotional disorder [None]
  - Depressed level of consciousness [None]
  - Confusional state [None]
  - Aphasia [None]

NARRATIVE: CASE EVENT DATE: 20200728
